FAERS Safety Report 13749726 (Version 1)
Quarter: 2017Q3

REPORT INFORMATION
  Report Type: Spontaneous
  Country: DE (occurrence: DE)
  Receive Date: 20170713
  Receipt Date: 20170713
  Transmission Date: 20171127
  Serious: Yes (Other)
  Sender: FDA-Public Use
  Company Number: DE-DRREDDYS-GER/GER/17/0091947

PATIENT
  Age: 32 Year
  Sex: Female
  Weight: 75 kg

DRUGS (4)
  1. IBUBETA 800 [Suspect]
     Active Substance: IBUPROFEN
     Indication: PRODUCT USED FOR UNKNOWN INDICATION
     Route: 048
     Dates: start: 20170629, end: 20170629
  2. NORFLOXACIN 400 [Suspect]
     Active Substance: NORFLOXACIN
     Indication: PRODUCT USED FOR UNKNOWN INDICATION
     Route: 048
     Dates: start: 20170629, end: 20170629
  3. IBUPROFEN 400 MG REPLEKFARM [Suspect]
     Active Substance: IBUPROFEN
     Indication: PRODUCT USED FOR UNKNOWN INDICATION
     Route: 048
     Dates: start: 20170629, end: 20170629
  4. PHENOXYMETHYLPENICILLIN [Suspect]
     Active Substance: PENICILLIN V
     Indication: PRODUCT USED FOR UNKNOWN INDICATION
     Route: 048
     Dates: start: 20170629, end: 20170629

REACTIONS (3)
  - Intentional overdose [Unknown]
  - Vomiting [Unknown]
  - Depression [Unknown]

NARRATIVE: CASE EVENT DATE: 20170629
